FAERS Safety Report 9216627 (Version 1)
Quarter: 2013Q2

REPORT INFORMATION
  Report Type: Spontaneous
  Country: JP (occurrence: JP)
  Receive Date: 20130408
  Receipt Date: 20130408
  Transmission Date: 20140414
  Serious: Yes (Hospitalization)
  Sender: FDA-Public Use
  Company Number: JP-BAYER-2013-043360

PATIENT
  Age: 64 Year
  Sex: Male
  Weight: 47.4 kg

DRUGS (2)
  1. ACETYLSALICYLIC ACID({=100 MG) [Suspect]
     Indication: ISCHAEMIC HEART DISEASE PROPHYLAXIS
  2. UNFRACTIONATED HEPARIN [Interacting]
     Indication: DIALYSIS

REACTIONS (3)
  - Renal cell carcinoma [Recovered/Resolved]
  - Shock haemorrhagic [Recovered/Resolved]
  - Drug interaction [None]
